FAERS Safety Report 18550100 (Version 1)
Quarter: 2020Q4

REPORT INFORMATION
  Report Type: Spontaneous
  Country: CN (occurrence: CN)
  Receive Date: 20201126
  Receipt Date: 20201126
  Transmission Date: 20210114
  Serious: Yes (Hospitalization, Other)
  Sender: FDA-Public Use
  Company Number: CN-PFIZER INC-2020461719

PATIENT
  Age: 79 Year
  Sex: Male
  Weight: 60 kg

DRUGS (3)
  1. LIPITOR [Suspect]
     Active Substance: ATORVASTATIN CALCIUM
     Indication: LIPIDS ABNORMAL
     Dosage: 20 MG, 1X/DAY
     Route: 048
     Dates: start: 20201022, end: 20201107
  2. TIAN QING GAN MEI [Suspect]
     Active Substance: MAGNESIUM ISOGLYCYRRHIZINATE
     Indication: LIVER DISORDER
     Dosage: 20 ML, 1X/DAY
     Route: 041
     Dates: start: 20201109, end: 20201112
  3. SALBUTAMOL SULFATE [Suspect]
     Active Substance: ALBUTEROL SULFATE
     Indication: PRODUCTIVE COUGH
     Dosage: 2.5 ML, 3X/DAY
     Dates: start: 20201109, end: 20201112

REACTIONS (4)
  - Rhabdomyolysis [Recovering/Resolving]
  - Hyperkalaemia [Recovering/Resolving]
  - Infection [Recovering/Resolving]
  - Pyrexia [Recovering/Resolving]

NARRATIVE: CASE EVENT DATE: 202011
